FAERS Safety Report 4716787-4 (Version None)
Quarter: 2005Q3

REPORT INFORMATION
  Report Type: 
  Country: None (occurrence: None)
  Receive Date: 20050719
  Receipt Date: 20050704
  Transmission Date: 20060218
  Serious: Yes (Disabling)
  Sender: FDA-Public Use
  Company Number: AU-AMGEN-US141300

PATIENT
  Sex: Male

DRUGS (7)
  1. ARANESP [Suspect]
     Indication: ANAEMIA
     Route: 058
  2. NORVASC [Suspect]
     Route: 048
  3. LISINOPRIL [Suspect]
     Route: 048
  4. MICARDIS [Suspect]
     Route: 048
  5. LASIX [Suspect]
  6. WARFARIN SODIUM [Suspect]
     Route: 048
  7. ZYLOPRIM [Suspect]
     Route: 048

REACTIONS (5)
  - ASTHENIA [None]
  - HEAT RASH [None]
  - PARAESTHESIA [None]
  - PRURITUS [None]
  - SKIN BURNING SENSATION [None]
